FAERS Safety Report 9527954 (Version 1)
Quarter: 2013Q1

REPORT INFORMATION
  Report Type: Spontaneous
  Country: US (occurrence: None)
  Receive Date: 20130314
  Receipt Date: 20130314
  Transmission Date: 20140127
  Serious: Yes (Other)
  Sender: FDA-Public Use
  Company Number: 1212USA000538

PATIENT
  Age: 48 Year
  Sex: Male

DRUGS (6)
  1. VICTRELIS [Suspect]
     Indication: HEPATITIS C
     Dosage: UNK, ORAL
     Route: 048
     Dates: start: 20120221, end: 20121128
  2. PEGASYS [Suspect]
     Indication: HEPATITIS C
  3. RIBASPHERE [Suspect]
     Indication: HEPATITIS C
  4. HUMALOG (INSULIN LISPRO) [Concomitant]
  5. DIOVAN (VALSARTAN) [Concomitant]
  6. LANTUS (INSULIN GLARGINE) [Concomitant]

REACTIONS (1)
  - Eye disorder [None]
